FAERS Safety Report 24079853 (Version 1)
Quarter: 2024Q3

REPORT INFORMATION
  Report Type: Spontaneous
  Country: US (occurrence: None)
  Receive Date: 20240711
  Receipt Date: 20240711
  Transmission Date: 20241017
  Serious: Yes (Hospitalization)
  Sender: Public
  Company Number: None

PATIENT
  Age: 17 Year
  Sex: Female
  Weight: 62.9 kg

DRUGS (4)
  1. CYCLOPHOSPHAMIDE [Suspect]
     Active Substance: CYCLOPHOSPHAMIDE
     Dates: start: 20231002
  2. DACTINOMYCIN [Concomitant]
     Active Substance: DACTINOMYCIN
  3. VINCRISTINE SULFATE [Concomitant]
     Active Substance: VINCRISTINE SULFATE
  4. VINORELBINE TARTRATE [Concomitant]
     Active Substance: VINORELBINE TARTRATE

REACTIONS (8)
  - Peripheral sensory neuropathy [None]
  - Condition aggravated [None]
  - Proctalgia [None]
  - Pain [None]
  - Tenderness [None]
  - Mobility decreased [None]
  - Gait disturbance [None]
  - Toxicity to various agents [None]

NARRATIVE: CASE EVENT DATE: 20240706
